FAERS Safety Report 6759513-X (Version None)
Quarter: 2010Q2

REPORT INFORMATION
  Report Type: 
  Country: None (occurrence: None)
  Receive Date: 20100603
  Receipt Date: 20100519
  Transmission Date: 20101027
  Serious: Yes (Other)
  Sender: FDA-Public Use
  Company Number: 2010AL002297

PATIENT
  Age: 36 Year
  Sex: Female

DRUGS (2)
  1. MIRTAZAPINE [Suspect]
  2. ABILIFY [Concomitant]

REACTIONS (2)
  - MULTIPLE DRUG OVERDOSE [None]
  - PANCREATITIS [None]
